FAERS Safety Report 7658180-0 (Version None)
Quarter: 2011Q3

REPORT INFORMATION
  Report Type: 
  Country: None (occurrence: None)
  Receive Date: 20110805
  Receipt Date: 20110207
  Transmission Date: 20111222
  Serious: Yes (Hospitalization, Other)
  Sender: FDA-Public Use
  Company Number: GR-JNJFOC-20110107813

PATIENT
  Age: 53 Year
  Sex: Female
  Weight: 87 kg

DRUGS (8)
  1. ZANTAC [Concomitant]
     Dates: start: 20050101
  2. CRESTOR [Concomitant]
     Dates: start: 20050101
  3. ISOPTIN [Concomitant]
     Dates: start: 20050101
  4. REMICADE [Suspect]
     Dosage: DOSE 460 MG EVERY 2 MONTHS
     Route: 042
     Dates: start: 20080619
  5. REMICADE [Suspect]
     Indication: PSORIATIC ARTHROPATHY
     Dosage: 19TH INFUSION : DOSE 460 MG EVERY 2 MONTHS
     Route: 042
     Dates: start: 20101207
  6. UNSPECIFIED IMMUNOMODULATOR [Suspect]
     Indication: PRODUCT USED FOR UNKNOWN INDICATION
     Route: 065
  7. FLUTICASONE PROPIONATE [Concomitant]
  8. SALOSPIR-A [Concomitant]
     Dates: start: 20060101

REACTIONS (3)
  - GAIT DISTURBANCE [None]
  - DEMYELINATION [None]
  - HYPOAESTHESIA [None]
